FAERS Safety Report 4325155-9 (Version None)
Quarter: 2004Q1

REPORT INFORMATION
  Report Type: 
  Country: None (occurrence: None)
  Receive Date: 20040326
  Receipt Date: 20040225
  Transmission Date: 20041129
  Serious: Yes (Hospitalization, Other)
  Sender: FDA-Public Use
  Company Number: US-MERCK-0402USA01889

PATIENT
  Age: 71 Year
  Sex: Female
  Weight: 70 kg

DRUGS (4)
  1. FOSAMAX [Suspect]
     Indication: OSTEOPOROSIS
     Route: 048
     Dates: start: 20030101, end: 20030101
  2. FOSAMAX [Suspect]
     Route: 048
     Dates: start: 20030207, end: 20040113
  3. FOSAMAX [Suspect]
     Indication: OSTEOPENIA
     Route: 048
     Dates: start: 20030101, end: 20030101
  4. FOSAMAX [Suspect]
     Route: 048
     Dates: start: 20030207, end: 20040113

REACTIONS (10)
  - COLONIC POLYP [None]
  - DIVERTICULUM [None]
  - ESCHERICHIA URINARY TRACT INFECTION [None]
  - GASTRITIS [None]
  - GASTRITIS EROSIVE [None]
  - HAEMORRHAGE [None]
  - HAEMORRHOIDS [None]
  - HIATUS HERNIA [None]
  - IRON DEFICIENCY ANAEMIA [None]
  - MEDICATION ERROR [None]
